FAERS Safety Report 6845843-X (Version None)
Quarter: 2010Q3

REPORT INFORMATION
  Report Type: 
  Country: None (occurrence: None)
  Receive Date: 20100715
  Receipt Date: 20071108
  Transmission Date: 20110219
  Serious: Yes (Other)
  Sender: FDA-Public Use
  Company Number: US-PFIZER INC-2007072256

PATIENT
  Sex: Female
  Weight: 72.7 kg

DRUGS (1)
  1. CHANTIX [Suspect]
     Indication: SMOKING CESSATION THERAPY
     Dosage: EVERY DAY
     Route: 048
     Dates: start: 20070801

REACTIONS (12)
  - ABDOMINAL DISTENSION [None]
  - ABDOMINAL PAIN [None]
  - ANTISOCIAL BEHAVIOUR [None]
  - BLINDNESS [None]
  - FATIGUE [None]
  - HEADACHE [None]
  - LAZINESS [None]
  - LETHARGY [None]
  - NAUSEA [None]
  - SOMNOLENCE [None]
  - TENDERNESS [None]
  - VISUAL IMPAIRMENT [None]
